FAERS Safety Report 23097507 (Version 2)
Quarter: 2023Q4

REPORT INFORMATION
  Report Type: Report from Study
  Country: BR (occurrence: BR)
  Receive Date: 20231023
  Receipt Date: 20231115
  Transmission Date: 20240109
  Serious: Yes (Disabling)
  Sender: FDA-Public Use
  Company Number: BR-002147023-NVSC2023BR226497

PATIENT
  Age: 51 Year
  Sex: Female
  Weight: 63 kg

DRUGS (1)
  1. ENTRESTO [Suspect]
     Active Substance: SACUBITRIL\VALSARTAN
     Indication: Cardiac failure
     Dosage: 50 MG, BID
     Route: 048

REACTIONS (3)
  - Chest pain [Unknown]
  - Blood pressure decreased [Unknown]
  - Back pain [Unknown]

NARRATIVE: CASE EVENT DATE: 20231001
